FAERS Safety Report 11939127 (Version 1)
Quarter: 2016Q1

REPORT INFORMATION
  Report Type: Other
  Country: US (occurrence: US)
  Receive Date: 20160122
  Receipt Date: 20160122
  Transmission Date: 20160526
  Serious: Yes (Death)
  Sender: FDA-Public Use
  Company Number: US-OSMOTICA_PHARMACEUTICAL_CORP-POI0573201600006

PATIENT
  Age: 63 Year
  Sex: Female

DRUGS (3)
  1. OXYBUTYNIN CHLORIDE EXTENDED RELEASE [Suspect]
     Active Substance: OXYBUTYNIN CHLORIDE
     Dates: end: 2014
  2. ACETAMINOPHEN. [Suspect]
     Active Substance: ACETAMINOPHEN
     Dates: end: 2014
  3. INSULIN [Suspect]
     Active Substance: INSULIN NOS
     Dates: end: 2014

REACTIONS (1)
  - Completed suicide [Fatal]

NARRATIVE: CASE EVENT DATE: 2014
